FAERS Safety Report 8374038-6 (Version None)
Quarter: 2012Q2

REPORT INFORMATION
  Report Type: 
  Country: None (occurrence: None)
  Receive Date: 20120521
  Receipt Date: 20120515
  Transmission Date: 20120825
  Serious: Yes (Other)
  Sender: FDA-Public Use
  Company Number: US-PFIZER INC-2012118975

PATIENT
  Sex: Female

DRUGS (8)
  1. ELAVIL [Suspect]
     Dosage: UNK
  2. TOFRANIL [Suspect]
     Dosage: UNK
  3. INDERAL [Suspect]
     Dosage: UNK
  4. PAXIL [Suspect]
     Dosage: UNK
  5. REMERON [Suspect]
     Dosage: UNK
  6. DESYREL [Suspect]
     Dosage: UNK
  7. PROZAC [Suspect]
     Dosage: UNK
  8. ZOLOFT [Suspect]
     Dosage: UNK

REACTIONS (1)
  - DRUG HYPERSENSITIVITY [None]
